FAERS Safety Report 18255749 (Version 1)
Quarter: 2020Q3

REPORT INFORMATION
  Report Type: Other
  Country: US (occurrence: US)
  Receive Date: 20200910
  Receipt Date: 20200910
  Transmission Date: 20201103
  Serious: No
  Sender: FDA-Public Use
  Company Number: US-LEADIANT BIOSCIENCES INC-2019STPI000394

PATIENT

DRUGS (4)
  1. MATULANE [Suspect]
     Active Substance: PROCARBAZINE HYDROCHLORIDE
     Indication: BRAIN NEOPLASM MALIGNANT
     Dosage: 50 MILLIGRAM TWO CAPSULES EVERY EVENING FOR 10DAYS
     Route: 048
     Dates: start: 20190221
  2. MULTIVITAMINS [VITAMINS NOS] [Concomitant]
     Active Substance: VITAMINS
  3. KEPPRA [Concomitant]
     Active Substance: LEVETIRACETAM
  4. IRON [Concomitant]
     Active Substance: IRON

REACTIONS (1)
  - Nausea [Unknown]
